FAERS Safety Report 21480367 (Version 1)
Quarter: 2022Q4

REPORT INFORMATION
  Report Type: Spontaneous
  Country: CN (occurrence: CN)
  Receive Date: 20221019
  Receipt Date: 20221019
  Transmission Date: 20230112
  Serious: Yes (Other)
  Sender: FDA-Public Use
  Company Number: CN-PFIZER INC-PV202200083316

PATIENT
  Age: 89 Year
  Sex: Male

DRUGS (2)
  1. CEFOPERAZONE SODIUM\SULBACTAM SODIUM [Suspect]
     Active Substance: CEFOPERAZONE SODIUM\SULBACTAM SODIUM
     Indication: Cholecystitis infective
     Dosage: 3 G, 3X/DAY
     Route: 041
     Dates: start: 20220817, end: 20220818
  2. MEROPENEM [Suspect]
     Active Substance: MEROPENEM
     Indication: Cholecystitis infective
     Dosage: UNK
     Route: 041

REACTIONS (2)
  - Rash papular [Recovering/Resolving]
  - Off label use [Unknown]

NARRATIVE: CASE EVENT DATE: 20220817
